FAERS Safety Report 11904798 (Version 1)
Quarter: 2016Q1

REPORT INFORMATION
  Report Type: Spontaneous
  Country: US (occurrence: US)
  Receive Date: 20160108
  Receipt Date: 20160108
  Transmission Date: 20160526
  Serious: Yes (Hospitalization)
  Sender: FDA-Public Use
  Company Number: US-ROCHE-1506364

PATIENT
  Age: 53 Year
  Sex: Male
  Weight: 75.5 kg

DRUGS (7)
  1. VITAMIN K [Concomitant]
     Active Substance: PHYTONADIONE
  2. AMITRIPTYLINE [Concomitant]
     Active Substance: AMITRIPTYLINE
     Dosage: AT BEDTIME
     Route: 048
  3. FRESH FROZEN PLASMA [Concomitant]
     Active Substance: HUMAN PLASMA
  4. ASPIRIN. [Concomitant]
     Active Substance: ASPIRIN
     Route: 048
     Dates: end: 20141123
  5. LISINOPRIL. [Concomitant]
     Active Substance: LISINOPRIL
     Indication: HYPERTENSION
     Route: 048
  6. ACTIVASE [Suspect]
     Active Substance: ALTEPLASE
     Indication: CEREBROVASCULAR ACCIDENT
     Route: 042
     Dates: start: 20141123, end: 20141123
  7. COREG [Concomitant]
     Active Substance: CARVEDILOL
     Indication: SUPRAVENTRICULAR TACHYCARDIA
     Route: 048

REACTIONS (1)
  - Cerebral haemorrhage [Recovered/Resolved with Sequelae]

NARRATIVE: CASE EVENT DATE: 20141123
